FAERS Safety Report 8834759 (Version 2)
Quarter: 2012Q4

REPORT INFORMATION
  Report Type: Spontaneous
  Country: DK (occurrence: None)
  Receive Date: 20121009
  Receipt Date: 20121031
  Transmission Date: 20130627
  Serious: Yes (Hospitalization)
  Sender: FDA-Public Use
  Company Number: 2012MA012090

PATIENT
  Age: 87 Year
  Sex: Female

DRUGS (11)
  1. DICLOFENAC SODIUM [Suspect]
     Indication: ARTHRITIS
     Route: 061
     Dates: end: 20120909
  2. DIGOXIN [Concomitant]
  3. ATORVASTATIN [Concomitant]
  4. IBANDRONIC ACID [Concomitant]
  5. FUROSEMIDE [Concomitant]
  6. RAMIPRIL [Concomitant]
  7. LATANOPROST [Concomitant]
  8. TRIMETHOPRIM [Concomitant]
  9. ADCAL-D3 [Concomitant]
  10. EUMOVATE [Concomitant]
  11. WARFARIN [Concomitant]

REACTIONS (3)
  - Duodenal ulcer haemorrhage [None]
  - Haemoglobin decreased [None]
  - Blood urea increased [None]
